FAERS Safety Report 22629880 (Version 1)
Quarter: 2023Q2

REPORT INFORMATION
  Report Type: Spontaneous
  Country: FR (occurrence: FR)
  Receive Date: 20230622
  Receipt Date: 20230622
  Transmission Date: 20230722
  Serious: Yes (Other)
  Sender: FDA-Public Use
  Company Number: FR-009507513-1502FRA003215

PATIENT
  Sex: Male
  Weight: 77 kg

DRUGS (3)
  1. PROPECIA [Suspect]
     Active Substance: FINASTERIDE
     Indication: Androgenetic alopecia
     Dosage: 1 MILLIGRAM, QD
     Route: 048
     Dates: start: 20040109, end: 20141210
  2. FINASTERIDE [Suspect]
     Active Substance: FINASTERIDE
     Indication: Androgenetic alopecia
     Dosage: UNK
     Route: 048
     Dates: start: 20121022, end: 201310
  3. CICLOPIROX OLAMINE [Suspect]
     Active Substance: CICLOPIROX OLAMINE
     Indication: Fungal infection
     Dosage: UNK

REACTIONS (38)
  - Urethral stenosis [Unknown]
  - Bacterial prostatitis [Unknown]
  - Rectal haemorrhage [Unknown]
  - Pudendal canal syndrome [Unknown]
  - Xerophthalmia [Unknown]
  - Hypogonadism [Unknown]
  - Sex hormone binding globulin increased [Unknown]
  - Product use in unapproved indication [Unknown]
  - Penile pain [Unknown]
  - Headache [Unknown]
  - Anxiety [Unknown]
  - Fungal infection [Unknown]
  - Penis disorder [Unknown]
  - Urethritis [Unknown]
  - Penile oedema [Unknown]
  - Sinusitis [Unknown]
  - Dry eye [Unknown]
  - Keratitis [Unknown]
  - Dry skin [Unknown]
  - Cystitis bacterial [Unknown]
  - Asthenia [Unknown]
  - Photosensitivity reaction [Unknown]
  - Immune system disorder [Unknown]
  - Mouth ulceration [Unknown]
  - Tinnitus [Unknown]
  - Hair growth abnormal [Unknown]
  - Weight increased [Unknown]
  - Hot flush [Unknown]
  - Pain in extremity [Unknown]
  - Impaired work ability [Unknown]
  - Androgen deficiency [Unknown]
  - Heterophoria [Unknown]
  - Fatigue [Unknown]
  - Prostatitis [Unknown]
  - Depression [Unknown]
  - Loss of libido [Unknown]
  - Testicular pain [Unknown]
  - Pruritus [Unknown]

NARRATIVE: CASE EVENT DATE: 20051101
